FAERS Safety Report 11323289 (Version 1)
Quarter: 2015Q3

REPORT INFORMATION
  Report Type: Spontaneous
  Country: US (occurrence: None)
  Receive Date: 20150729
  Receipt Date: 20150729
  Transmission Date: 20151125
  Serious: Yes (Other)
  Sender: FDA-Public Use
  Company Number: None

PATIENT
  Age: 68 Year
  Sex: Male
  Weight: 95.26 kg

DRUGS (7)
  1. VALSARTAN. [Concomitant]
     Active Substance: VALSARTAN
  2. BUDESONIDE. [Suspect]
     Active Substance: BUDESONIDE
     Indication: SINUS DISORDER
     Dosage: 0.6 MG?CONFUSING INSTRUCTIONS BY PHARMACY 1 CAP EACH USE ?BOTTLE SAYS 1XDAY, BUT RX MAY SAY 2X DAY.?MIXED IN SQUEEZE BOTTLE WITH SALINE SOLUTION AS SINUS RINSE.??THERAPY DATE?ABOUT 06/15/2015?STOP 06/25/2015
     Dates: end: 20150625
  3. PANTOPRAZOLE [Concomitant]
     Active Substance: PANTOPRAZOLE SODIUM
  4. ASPIRIN. [Concomitant]
     Active Substance: ASPIRIN
  5. VITAMINS [Concomitant]
     Active Substance: VITAMINS
  6. CARVEDILOL. [Concomitant]
     Active Substance: CARVEDILOL
  7. SPIRONOLACTONE. [Concomitant]
     Active Substance: SPIRONOLACTONE

REACTIONS (2)
  - Drug administration error [None]
  - Adverse drug reaction [None]

NARRATIVE: CASE EVENT DATE: 201505
